FAERS Safety Report 21325892 (Version 2)
Quarter: 2022Q4

REPORT INFORMATION
  Report Type: Spontaneous
  Country: US (occurrence: US)
  Receive Date: 20220913
  Receipt Date: 20221209
  Transmission Date: 20230113
  Serious: Yes (Other)
  Sender: FDA-Public Use
  Company Number: US-AMGEN-USASP2022155085

PATIENT
  Sex: Female

DRUGS (6)
  1. OTEZLA [Suspect]
     Active Substance: APREMILAST
     Indication: Psoriatic arthropathy
     Dosage: 30 MILLIGRAM, BID
     Route: 048
     Dates: start: 20210615
  2. ALLEGRA [Concomitant]
     Active Substance: FEXOFENADINE HYDROCHLORIDE
     Dosage: 180 MILLIGRAM
  3. BIOTIN [Concomitant]
     Active Substance: BIOTIN
     Dosage: 7500 MICROGRAM
  4. CALCIUM CITRATE [Concomitant]
     Active Substance: CALCIUM CITRATE
     Dosage: 200 MILLIGRAM
  5. D3 50 [Concomitant]
     Dosage: 5000 UNIT
  6. LEVOTHYROXINE [Concomitant]
     Active Substance: LEVOTHYROXINE
     Dosage: 75 MICROGRAM

REACTIONS (2)
  - Psoriatic arthropathy [Not Recovered/Not Resolved]
  - Alopecia [Not Recovered/Not Resolved]
